FAERS Safety Report 25437201 (Version 5)
Quarter: 2025Q3

REPORT INFORMATION
  Report Type: Report from Study
  Country: CA (occurrence: CA)
  Receive Date: 20250616
  Receipt Date: 20250826
  Transmission Date: 20251021
  Serious: Yes (Other)
  Sender: Alvotech
  Company Number: CA-JAMP PHARMA CORPORATION-2024-JAM-CA-01980

PATIENT
  Age: 65 Year
  Sex: Male

DRUGS (2)
  1. SIMLANDI [Suspect]
     Active Substance: ADALIMUMAB-RYVK
     Indication: Rheumatoid arthritis
     Dosage: 40 MG, EVERY 2 WEEK
     Route: 058
     Dates: start: 20231227
  2. SIMLANDI [Suspect]
     Active Substance: ADALIMUMAB-RYVK
     Indication: Rheumatoid arthritis
     Dosage: 40 MILLIGRAM, EVERY 2 WEEKS
     Route: 058

REACTIONS (10)
  - Nephrolithiasis [Not Recovered/Not Resolved]
  - Surgery [Unknown]
  - Blood urine present [Not Recovered/Not Resolved]
  - Mobility decreased [Not Recovered/Not Resolved]
  - Procedural nausea [Recovered/Resolved]
  - Procedural pain [Recovered/Resolved]
  - Peripheral swelling [Unknown]
  - Pain in extremity [Not Recovered/Not Resolved]
  - Joint swelling [Not Recovered/Not Resolved]
  - Arthralgia [Not Recovered/Not Resolved]

NARRATIVE: CASE EVENT DATE: 20241007
